FAERS Safety Report 7258681-3 (Version None)
Quarter: 2011Q1

REPORT INFORMATION
  Report Type: 
  Country: None (occurrence: None)
  Receive Date: 20110129
  Receipt Date: 20100521
  Transmission Date: 20110831
  Serious: Yes (Other)
  Sender: FDA-Public Use
  Company Number: PR-ABBOTT-10P-131-0637738-00

PATIENT
  Age: 68 Year
  Sex: Female
  Weight: 61.744 kg

DRUGS (3)
  1. LEVOXYL [Concomitant]
     Indication: HYPOTHYROIDISM
     Dosage: 1 TABLET DAILY
     Route: 048
  2. HUMIRA [Suspect]
     Indication: RHEUMATOID ARTHRITIS
     Route: 058
     Dates: start: 20090427
  3. PREDNISONE [Concomitant]
     Indication: RHEUMATOID ARTHRITIS
     Dosage: 1 TABLET OCCASIONALLY
     Route: 048

REACTIONS (2)
  - ADENOID CYSTIC CARCINOMA [None]
  - SALIVARY GLAND CANCER [None]
